FAERS Safety Report 17560805 (Version 17)
Quarter: 2025Q3

REPORT INFORMATION
  Report Type: Report from Study
  Country: US (occurrence: US)
  Receive Date: 20200319
  Receipt Date: 20250910
  Transmission Date: 20251020
  Serious: Yes (Hospitalization, Other)
  Sender: TAKEDA
  Company Number: US-SHIRE-US202009844

PATIENT
  Age: 90 Year
  Sex: Female
  Weight: 65 kg

DRUGS (46)
  1. HUMAN IMMUNOGLOBULIN G\HYALURONIDASE RECOMBINANT HUMAN [Suspect]
     Active Substance: HUMAN IMMUNOGLOBULIN G\HYALURONIDASE (HUMAN RECOMBINANT)
     Indication: Immunodeficiency common variable
     Dosage: 17.5 GRAM, Q4WEEKS
  2. HUMAN IMMUNOGLOBULIN G\HYALURONIDASE RECOMBINANT HUMAN [Suspect]
     Active Substance: HUMAN IMMUNOGLOBULIN G\HYALURONIDASE (HUMAN RECOMBINANT)
     Dosage: 17.5 GRAM, Q4WEEKS
  3. SODIUM CHLORIDE [Concomitant]
     Active Substance: SODIUM CHLORIDE
  4. ACETAMINOPHEN [Concomitant]
     Active Substance: ACETAMINOPHEN
  5. EPINEPHRINE [Concomitant]
     Active Substance: EPINEPHRINE
  6. FUROSEMIDE [Concomitant]
     Active Substance: FUROSEMIDE
  7. DOCUSATE SODIUM [Concomitant]
     Active Substance: DOCUSATE SODIUM
  8. VITAMIN B [Concomitant]
     Active Substance: VITAMIN B
  9. FLUTICASONE [Concomitant]
     Active Substance: FLUTICASONE
  10. AMOXICILLIN [Concomitant]
     Active Substance: AMOXICILLIN
  11. LEVOTHYROXINE SODIUM [Concomitant]
     Active Substance: LEVOTHYROXINE SODIUM
  12. ALLEGRA ALLERGY [Concomitant]
     Active Substance: FEXOFENADINE HYDROCHLORIDE
  13. SERTRALINE HYDROCHLORIDE [Concomitant]
     Active Substance: SERTRALINE HYDROCHLORIDE
  14. ICY HOT [Concomitant]
     Active Substance: LIDOCAINE\MENTHOL
  15. LACTULOSE [Concomitant]
     Active Substance: LACTULOSE
  16. SYMBICORT [Concomitant]
     Active Substance: BUDESONIDE\FORMOTEROL FUMARATE DIHYDRATE
  17. FLUBLOK QUADRIVALENT NOS [Concomitant]
     Active Substance: INFLUENZA VIRUS VACCINE
  18. PROAIR HFA [Concomitant]
     Active Substance: ALBUTEROL SULFATE
  19. OXYGEN [Concomitant]
     Active Substance: OXYGEN
     Indication: Product used for unknown indication
  20. DIPHENHYDRAMINE HYDROCHLORIDE [Concomitant]
     Active Substance: DIPHENHYDRAMINE HYDROCHLORIDE
  21. Lmx [Concomitant]
  22. ELIQUIS [Concomitant]
     Active Substance: APIXABAN
  23. DILTIAZEM HYDROCHLORIDE [Concomitant]
     Active Substance: DILTIAZEM HYDROCHLORIDE
  24. POTASSIUM CHLORIDE [Concomitant]
     Active Substance: POTASSIUM CHLORIDE
  25. PRAVASTATIN SODIUM [Concomitant]
     Active Substance: PRAVASTATIN SODIUM
  26. IRON [Concomitant]
     Active Substance: IRON
  27. OMEPRAZOLE [Concomitant]
     Active Substance: OMEPRAZOLE
  28. FLONASE [Concomitant]
     Active Substance: FLUTICASONE PROPIONATE
  29. BIOTIN [Concomitant]
     Active Substance: BIOTIN
  30. VITAMIN D3 [Concomitant]
     Active Substance: CHOLECALCIFEROL
  31. CALTRATE WITH VITAMIN D [Concomitant]
     Active Substance: CALCIUM CARBONATE\CHOLECALCIFEROL
  32. VOLTAREN [Concomitant]
     Active Substance: DICLOFENAC SODIUM
  33. LYRICA [Concomitant]
     Active Substance: PREGABALIN
  34. TYLENOL EXTRA STRENGTH [Concomitant]
     Active Substance: ACETAMINOPHEN
  35. ZOCOR [Concomitant]
     Active Substance: SIMVASTATIN
  36. HYDROCHLOROTHIAZIDE [Concomitant]
     Active Substance: HYDROCHLOROTHIAZIDE
  37. HYDROXYCHLOROQUINE [Concomitant]
     Active Substance: HYDROXYCHLOROQUINE
  38. TELMISARTAN [Concomitant]
     Active Substance: TELMISARTAN
  39. ASPIRIN [Concomitant]
     Active Substance: ASPIRIN
  40. VALSARTAN [Concomitant]
     Active Substance: VALSARTAN
  41. IBUPROFEN [Concomitant]
     Active Substance: IBUPROFEN
  42. SAVAYSA [Concomitant]
     Active Substance: EDOXABAN TOSYLATE
  43. FOLIC ACID [Concomitant]
     Active Substance: FOLIC ACID
  44. FERROUS SULFATE [Concomitant]
     Active Substance: FERROUS SULFATE
  45. MINERALS\VITAMINS [Concomitant]
     Active Substance: MINERALS\VITAMINS
  46. ALBUTEROL SULFATE [Concomitant]
     Active Substance: ALBUTEROL SULFATE

REACTIONS (33)
  - Muscle haemorrhage [Unknown]
  - Cardiac disorder [Unknown]
  - Pneumonia [Unknown]
  - Atrial fibrillation [Unknown]
  - Bradycardia [Unknown]
  - Product use issue [Unknown]
  - Insurance issue [Unknown]
  - Hypoacusis [Recovering/Resolving]
  - Constipation [Unknown]
  - Contusion [Unknown]
  - Fall [Unknown]
  - Flatulence [Unknown]
  - Urinary tract infection [Unknown]
  - Varicose vein [Unknown]
  - Productive cough [Unknown]
  - Muscle strain [Unknown]
  - Rhonchi [Unknown]
  - Dyspnoea exertional [Unknown]
  - Blood pressure abnormal [Unknown]
  - Pulmonary mass [Unknown]
  - Inappropriate schedule of product administration [Unknown]
  - Blood pressure decreased [Unknown]
  - Wheezing [Unknown]
  - Hypotension [Unknown]
  - Diarrhoea [Unknown]
  - Oedema peripheral [Unknown]
  - Oedema [Unknown]
  - Infusion site haemorrhage [Unknown]
  - Erythema [Unknown]
  - Infusion site oedema [Unknown]
  - Infusion site pain [Unknown]
  - Infusion site erythema [Unknown]
  - Dyspnoea [Unknown]

NARRATIVE: CASE EVENT DATE: 20220404
